FAERS Safety Report 7271493-X (Version None)
Quarter: 2011Q1

REPORT INFORMATION
  Report Type: 
  Country: None (occurrence: None)
  Receive Date: 20110128
  Receipt Date: 20110128
  Transmission Date: 20110831
  Serious: Yes (Life-Threatening)
  Sender: FDA-Public Use
  Company Number: None

PATIENT
  Sex: Female
  Weight: 61.2356 kg

DRUGS (1)
  1. MYLANTA [Suspect]
     Indication: ANTACID THERAPY
     Dosage: 2 CAP FULL WHEN NEED BY MOUTH END SP TO DEC 23
     Route: 048
     Dates: start: 20100901, end: 20101223

REACTIONS (7)
  - NAUSEA [None]
  - MALAISE [None]
  - DIARRHOEA [None]
  - GASTRIC DISORDER [None]
  - HAEMORRHAGE [None]
  - FLATULENCE [None]
  - PRODUCT QUALITY ISSUE [None]
